FAERS Safety Report 4502025-4 (Version None)
Quarter: 2004Q4

REPORT INFORMATION
  Report Type: 
  Country: None (occurrence: None)
  Receive Date: 20041115
  Receipt Date: 20041102
  Transmission Date: 20050328
  Serious: Yes (Hospitalization)
  Sender: FDA-Public Use
  Company Number: 2004AC00707

PATIENT
  Age: 63 Year
  Sex: Male

DRUGS (4)
  1. CRESTOR [Suspect]
     Dosage: 10 MG PO
     Route: 048
     Dates: start: 20040831, end: 20041025
  2. TRITACE [Concomitant]
  3. EFFEXOR [Concomitant]
  4. ISOTEN MITIS [Concomitant]

REACTIONS (2)
  - DRUG INEFFECTIVE [None]
  - IMPETIGO [None]
